FAERS Safety Report 5270236-9 (Version None)
Quarter: 2007Q1

REPORT INFORMATION
  Report Type: 
  Country: None (occurrence: None)
  Receive Date: 20061214
  Receipt Date: 20060919
  Transmission Date: 20070707
  Serious: No
  Sender: FDA-Public Use
  Company Number: IND-AE-06-SAN-039

PATIENT
  Age: 81 Year
  Sex: Male

DRUGS (5)
  1. SANCTURA [Suspect]
     Indication: HYPERTONIC BLADDER
     Dosage: 20 MG BID ORAL
     Route: 048
     Dates: start: 20050318, end: 20060517
  2. WARFARIN SODIUM [Concomitant]
  3. SULAR [Concomitant]
  4. COZAAR [Concomitant]
  5. DILTIAZEM [Concomitant]

REACTIONS (1)
  - DRUG INEFFECTIVE [None]
